FAERS Safety Report 5750700-6 (Version None)
Quarter: 2008Q2

REPORT INFORMATION
  Report Type: 
  Country: None (occurrence: None)
  Receive Date: 20080528
  Receipt Date: 20080515
  Transmission Date: 20081010
  Serious: Yes (Other)
  Sender: FDA-Public Use
  Company Number: FR-ROCHE-559976

PATIENT
  Sex: Female
  Weight: 77 kg

DRUGS (7)
  1. BONIVA [Suspect]
     Indication: OSTEOPOROSIS
     Route: 048
     Dates: start: 20071119, end: 20080401
  2. AROMASINE [Concomitant]
     Indication: BREAST CANCER
  3. VECTARION [Concomitant]
     Dosage: 1 DOSE IN EVENING FOR 2 MONTHS EVERY 3 MONTHS
     Route: 048
  4. ASPIRIN [Concomitant]
     Indication: CARDIOVASCULAR EVENT PROPHYLAXIS
     Dosage: DRUG REPORTED: KARDEGIC 160
     Route: 048
  5. FLUDEX [Concomitant]
     Dosage: IN MORNING. DRUG REPORTED: FLUDEX 1.5 LP
     Route: 048
  6. IPERTEN [Concomitant]
     Dosage: IN MORNING. DRUG REPORTED: IPERTEN 10
     Route: 048
  7. ATACAND [Concomitant]
     Dosage: AT LUNCHTIME
     Route: 048

REACTIONS (3)
  - BREAST CANCER RECURRENT [None]
  - METASTASES TO LYMPH NODES [None]
  - STOMATITIS [None]
